FAERS Safety Report 7791834-4 (Version None)
Quarter: 2011Q4

REPORT INFORMATION
  Report Type: 
  Country: None (occurrence: None)
  Receive Date: 20111003
  Receipt Date: 20110927
  Transmission Date: 20120403
  Serious: No
  Sender: FDA-Public Use
  Company Number: US-PFIZER INC-2011231094

PATIENT
  Sex: Female
  Weight: 36.281 kg

DRUGS (2)
  1. COZAAR [Concomitant]
     Indication: HYPERTENSION
     Dosage: 100 MG, DAILY
  2. DILANTIN [Suspect]
     Indication: POST PROCEDURAL COMPLICATION
     Dosage: 300 MG, ALTERNATE DAY
     Route: 048
     Dates: start: 19820101

REACTIONS (2)
  - ORTHODONTIC PROCEDURE [None]
  - TOOTH EXTRACTION [None]
